FAERS Safety Report 25723664 (Version 2)
Quarter: 2025Q3

REPORT INFORMATION
  Report Type: Spontaneous
  Country: JP (occurrence: JP)
  Receive Date: 20250825
  Receipt Date: 20250902
  Transmission Date: 20251020
  Serious: Yes (Death, Other)
  Sender: GILEAD
  Company Number: JP-GILEAD-2025-0725433

PATIENT
  Age: 68 Year
  Sex: Female

DRUGS (11)
  1. VEMLIDY [Suspect]
     Active Substance: TENOFOVIR ALAFENAMIDE FUMARATE
     Indication: Hepatitis B reactivation
     Dosage: 25 MG, QD
     Route: 065
     Dates: start: 20211027, end: 20211216
  2. URSO [Concomitant]
     Active Substance: URSODIOL
  3. FUROSEMIDE [Concomitant]
     Active Substance: FUROSEMIDE
  4. SPIRONOLACTONE [Concomitant]
     Active Substance: SPIRONOLACTONE
  5. NEXIUM [Concomitant]
     Active Substance: ESOMEPRAZOLE MAGNESIUM
  6. MAGNESIUM OXIDE [Concomitant]
     Active Substance: MAGNESIUM OXIDE
  7. LACTULOSE [Concomitant]
     Active Substance: LACTULOSE
  8. DAYVIGO [Concomitant]
     Active Substance: LEMBOREXANT
  9. BONALON [Concomitant]
     Active Substance: ALENDRONATE SODIUM
  10. SULFAMETHOXAZOLE\TRIMETHOPRIM [Concomitant]
     Active Substance: SULFAMETHOXAZOLE\TRIMETHOPRIM
  11. RIFAXIMIN [Concomitant]
     Active Substance: RIFAXIMIN

REACTIONS (2)
  - Hepatitis B reactivation [Fatal]
  - Hepatic failure [Fatal]

NARRATIVE: CASE EVENT DATE: 20210101
